FAERS Safety Report 7111147-3 (Version None)
Quarter: 2010Q4

REPORT INFORMATION
  Report Type: 
  Country: None (occurrence: None)
  Receive Date: 20101118
  Receipt Date: 20091116
  Transmission Date: 20110411
  Serious: No
  Sender: FDA-Public Use
  Company Number: US-TEVA-215314USA

PATIENT
  Sex: Male
  Weight: 113.5 kg

DRUGS (4)
  1. ALBUTEROL SULFATE AUTOHALER [Suspect]
     Dosage: AS NEEDED
     Route: 055
     Dates: start: 20090501
  2. ISOCARBOXAZID [Concomitant]
  3. ALPRAZOLAM [Concomitant]
  4. OLANZAPINE [Concomitant]

REACTIONS (2)
  - BLOOD PRESSURE INCREASED [None]
  - DYSPNOEA [None]
